FAERS Safety Report 7095786-4 (Version None)
Quarter: 2010Q4

REPORT INFORMATION
  Report Type: 
  Country: None (occurrence: None)
  Receive Date: 20101111
  Receipt Date: 20101029
  Transmission Date: 20110411
  Serious: Yes (Other)
  Sender: FDA-Public Use
  Company Number: PHHY2010CA73135

PATIENT
  Sex: Male

DRUGS (1)
  1. EXJADE [Suspect]
     Indication: THALASSAEMIA
     Dosage: 01 TABLET
     Route: 048

REACTIONS (5)
  - ASTHENIA [None]
  - CARDIOMEGALY [None]
  - GAIT DISTURBANCE [None]
  - LIVER DISORDER [None]
  - TOOTH DISORDER [None]
